FAERS Safety Report 9178899 (Version 17)
Quarter: 2015Q1

REPORT INFORMATION
  Report Type: Report from Study
  Country: CA (occurrence: CA)
  Receive Date: 20130321
  Receipt Date: 20150218
  Transmission Date: 20150721
  Serious: Yes (Other)
  Sender: FDA-Public Use
  Company Number: CA-ROCHE-1204433

PATIENT
  Age: 58 Year
  Sex: Female
  Weight: 71.2 kg

DRUGS (13)
  1. DOCETAXEL. [Suspect]
     Active Substance: DOCETAXEL
     Indication: BREAST CANCER METASTATIC
     Route: 065
     Dates: start: 2010
  2. HERCEPTIN [Suspect]
     Active Substance: TRASTUZUMAB
     Route: 042
     Dates: end: 20140407
  3. DOCETAXEL. [Suspect]
     Active Substance: DOCETAXEL
     Route: 065
     Dates: start: 200911, end: 201002
  4. HERCEPTIN [Suspect]
     Active Substance: TRASTUZUMAB
     Indication: BREAST CANCER METASTATIC
     Route: 042
     Dates: start: 201001, end: 20140407
  5. KADCYLA [Suspect]
     Active Substance: ADO-TRASTUZUMAB EMTANSINE
     Indication: HER-2 POSITIVE BREAST CANCER
     Route: 065
     Dates: start: 20140425
  6. HERCEPTIN [Suspect]
     Active Substance: TRASTUZUMAB
     Route: 042
     Dates: start: 200911, end: 201002
  7. NASONEX [Concomitant]
     Active Substance: MOMETASONE FUROATE
     Route: 045
  8. AERIUS (CANADA) [Concomitant]
  9. XELODA [Suspect]
     Active Substance: CAPECITABINE
     Indication: BREAST CANCER METASTATIC
     Dosage: DISCONTINUED ON UNKNOWN DATE
     Route: 048
     Dates: start: 201303
  10. CHLORHEXIDINE [Suspect]
     Active Substance: CHLORHEXIDINE
     Indication: PRODUCT USED FOR UNKNOWN INDICATION
     Route: 065
  11. DOCETAXEL. [Suspect]
     Active Substance: DOCETAXEL
     Route: 065
     Dates: start: 201205, end: 201209
  12. ARTHROTEC [Concomitant]
     Active Substance: DICLOFENAC SODIUM\MISOPROSTOL
     Dosage: DOSAGE DECREASED TO 50 MG BID ON 12/JAN/2015
     Route: 065
  13. HERCEPTIN [Suspect]
     Active Substance: TRASTUZUMAB
     Route: 042
     Dates: start: 201205, end: 201209

REACTIONS (26)
  - Pulmonary oedema [Not Recovered/Not Resolved]
  - Asthenopia [Unknown]
  - Nasopharyngitis [Recovering/Resolving]
  - Infusion related reaction [Unknown]
  - Epistaxis [Unknown]
  - Metastases to lymph nodes [Not Recovered/Not Resolved]
  - Metastases to bone [Not Recovered/Not Resolved]
  - Ejection fraction [Unknown]
  - Rash [Recovered/Resolved]
  - Fatigue [Unknown]
  - Lung infection [Recovered/Resolved]
  - Peripheral swelling [Recovering/Resolving]
  - Hypersensitivity [Not Recovered/Not Resolved]
  - Infusion related reaction [Unknown]
  - Aspartate aminotransferase increased [Unknown]
  - Alanine aminotransferase increased [Unknown]
  - Blood alkaline phosphatase increased [Unknown]
  - Blood lactate dehydrogenase increased [Unknown]
  - Flushing [Not Recovered/Not Resolved]
  - Ill-defined disorder [Unknown]
  - Gamma-glutamyltransferase increased [Unknown]
  - Pulmonary mass [Not Recovered/Not Resolved]
  - Malignant neoplasm progression [Not Recovered/Not Resolved]
  - Nausea [Recovered/Resolved]
  - Hepatic enzyme increased [Unknown]
  - Blood pressure increased [Unknown]

NARRATIVE: CASE EVENT DATE: 201205
